FAERS Safety Report 8317190-0 (Version None)
Quarter: 2012Q2

REPORT INFORMATION
  Report Type: 
  Country: None (occurrence: None)
  Receive Date: 20120427
  Receipt Date: 20120417
  Transmission Date: 20120825
  Serious: Yes (Hospitalization)
  Sender: FDA-Public Use
  Company Number: JP-ELI_LILLY_AND_COMPANY-JP201201003290

PATIENT
  Age: 65 Year
  Sex: Female

DRUGS (2)
  1. ANALGESICS [Concomitant]
     Indication: PAIN
     Route: 054
  2. FORTEO [Suspect]
     Route: 058

REACTIONS (3)
  - MULTIPLE MYELOMA [None]
  - DECREASED APPETITE [None]
  - INJECTION SITE HAEMATOMA [None]
